FAERS Safety Report 5232698-2 (Version None)
Quarter: 2007Q1

REPORT INFORMATION
  Report Type: 
  Country: None (occurrence: None)
  Receive Date: 20070207
  Receipt Date: 20070130
  Transmission Date: 20070707
  Serious: Yes (Life-Threatening, Other)
  Sender: FDA-Public Use
  Company Number: 2007SE00462

PATIENT
  Age: 53 Year
  Sex: Male

DRUGS (9)
  1. BUPIVACAINE [Suspect]
     Indication: BACK PAIN
     Route: 008
  2. MORPHINE [Suspect]
     Indication: BACK PAIN
     Route: 008
  3. METOCLOPRAMID [Concomitant]
     Route: 048
  4. OMEPRAZOLE [Concomitant]
     Route: 048
  5. MAGNESIUM LACTICUM [Concomitant]
     Route: 048
  6. FLUOXETINE [Concomitant]
     Route: 048
  7. ROFECOXIB [Concomitant]
     Route: 048
  8. LACTULOSA [Concomitant]
  9. FENTANYL [Concomitant]
     Dosage: 50 UG PER HOUR EVERY OTHER DAY
     Route: 062

REACTIONS (3)
  - ASTHENIA [None]
  - DYSPNOEA [None]
  - PARAESTHESIA [None]
